FAERS Safety Report 4738814-0 (Version None)
Quarter: 2005Q3

REPORT INFORMATION
  Report Type: 
  Country: None (occurrence: None)
  Receive Date: 20050809
  Receipt Date: 20050713
  Transmission Date: 20060218
  Serious: Yes (Hospitalization)
  Sender: FDA-Public Use
  Company Number: US-MERCK-0507USA01721

PATIENT
  Age: 63 Year
  Sex: Male
  Weight: 94 kg

DRUGS (8)
  1. DECADRON [Suspect]
     Indication: MULTIPLE MYELOMA
     Route: 048
     Dates: start: 20041105
  2. DECADRON [Suspect]
     Route: 048
     Dates: start: 20041119
  3. DECADRON [Suspect]
     Route: 048
     Dates: start: 20041005
  4. DECADRON [Suspect]
     Route: 048
  5. THALOMID [Suspect]
     Indication: MULTIPLE MYELOMA
     Route: 048
     Dates: start: 20041005, end: 20041011
  6. THALOMID [Suspect]
     Route: 048
     Dates: start: 20041101
  7. COUMADIN [Concomitant]
     Route: 048
     Dates: start: 20041101
  8. ZOCOR [Concomitant]
     Route: 048

REACTIONS (9)
  - ABDOMINAL DISCOMFORT [None]
  - BRADYCARDIA [None]
  - DIZZINESS [None]
  - GASTROOESOPHAGEAL REFLUX DISEASE [None]
  - HYPERTENSION [None]
  - INSOMNIA [None]
  - NAUSEA [None]
  - SYNCOPE [None]
  - VISION BLURRED [None]
